FAERS Safety Report 8075176-8 (Version None)
Quarter: 2012Q1

REPORT INFORMATION
  Report Type: 
  Country: None (occurrence: None)
  Receive Date: 20120127
  Receipt Date: 20120123
  Transmission Date: 20120608
  Serious: No
  Sender: FDA-Public Use
  Company Number: US-PFIZER INC-2012018545

PATIENT
  Sex: Female
  Weight: 54.4 kg

DRUGS (4)
  1. ACETYLSALICYLIC ACID [Concomitant]
     Indication: HEADACHE
     Dosage: UNK
  2. MEDROXYPROGESTERONE ACETATE [Suspect]
     Indication: MENOPAUSE
     Dosage: 2.5 MG, 1X/DAY
     Route: 048
     Dates: start: 19920101, end: 20120114
  3. PREMARIN [Suspect]
     Indication: MENOPAUSE
     Dosage: 1.25 MG, 1X/DAY
     Route: 048
     Dates: start: 19920101, end: 20120114
  4. ACETYLSALICYLIC ACID [Concomitant]
     Indication: SINUS DISORDER

REACTIONS (2)
  - ECONOMIC PROBLEM [None]
  - INSOMNIA [None]
